FAERS Safety Report 8465578-X (Version None)
Quarter: 2012Q2

REPORT INFORMATION
  Report Type: 
  Country: None (occurrence: None)
  Receive Date: 20120626
  Receipt Date: 20120618
  Transmission Date: 20120825
  Serious: Yes (Life-Threatening, Hospitalization)
  Sender: FDA-Public Use
  Company Number: JP-B.I. PHARMACEUTICALS,INC./RIDGEFIELD-2012-EU-02579GD

PATIENT
  Sex: Female
  Weight: 55 kg

DRUGS (7)
  1. MOBIC [Suspect]
     Indication: SPINAL OSTEOARTHRITIS
     Dosage: 10 MG
     Route: 048
     Dates: start: 20110523, end: 20110601
  2. LIPITOR [Concomitant]
     Indication: HYPERLIPIDAEMIA
     Route: 048
     Dates: end: 20120601
  3. CANDESARTAN CILEXETIL [Concomitant]
     Indication: HYPERTENSION
     Dosage: 4 MG
     Route: 048
     Dates: end: 20120601
  4. METHYLPREDNISOLONE SODIUM SUCCINATE [Concomitant]
     Indication: PNEUMONITIS
     Dosage: 1000 MG
     Route: 048
     Dates: start: 20120601, end: 20120606
  5. AMLODIPINE [Suspect]
     Indication: HYPERTENSION
     Dosage: 5 MG
     Route: 048
     Dates: start: 20110523, end: 20110601
  6. PAZUCROSS [Concomitant]
     Indication: PNEUMONIA BACTERIAL
     Dosage: 1000 MG
     Route: 048
     Dates: start: 20120601, end: 20120606
  7. MUCOSTA [Concomitant]
     Indication: GASTRITIS
     Route: 048
     Dates: start: 20120601

REACTIONS (4)
  - DYSPNOEA EXERTIONAL [None]
  - HYPOXIA [None]
  - PULMONARY EMBOLISM [None]
  - PNEUMONIA [None]
